FAERS Safety Report 18564932 (Version 1)
Quarter: 2020Q4

REPORT INFORMATION
  Report Type: Spontaneous
  Country: CN (occurrence: CN)
  Receive Date: 20201201
  Receipt Date: 20201201
  Transmission Date: 20210114
  Serious: Yes (Other)
  Sender: FDA-Public Use
  Company Number: CN-PFIZER INC-2020469865

PATIENT
  Age: 3 Year
  Sex: Female
  Weight: 17.5 kg

DRUGS (2)
  1. CEFOTAXIME SODIUM [Concomitant]
     Active Substance: CEFOTAXIME SODIUM
     Indication: PNEUMONIA
     Dosage: 0.65 G, 3X/DAY
     Route: 041
     Dates: start: 20201025
  2. ZITHROMAX [Suspect]
     Active Substance: AZITHROMYCIN DIHYDRATE
     Indication: PNEUMONIA
     Dosage: 166 MG, 1X/DAY
     Route: 048
     Dates: start: 20201025, end: 20201027

REACTIONS (2)
  - Cardiotoxicity [Recovering/Resolving]
  - Sinus arrhythmia [Unknown]

NARRATIVE: CASE EVENT DATE: 20201027
